FAERS Safety Report 10206544 (Version 3)
Quarter: 2016Q2

REPORT INFORMATION
  Report Type: Spontaneous
  Country: US (occurrence: US)
  Receive Date: 20140530
  Receipt Date: 20160511
  Transmission Date: 20160815
  Serious: Yes (Death, Other)
  Sender: FDA-Public Use
  Company Number: US-GLAXOSMITHKLINE-A1029305A

PATIENT
  Age: 63 Year
  Sex: Female

DRUGS (5)
  1. FLOLAN [Suspect]
     Active Substance: EPOPROSTENOL SODIUM
     Dosage: 41.3 NG/KG/MIN
  2. FLOLAN [Suspect]
     Active Substance: EPOPROSTENOL SODIUM
     Indication: PULMONARY ARTERIAL HYPERTENSION
     Dosage: 45.7 NG/KG/MIN, CONCENTRATION 45,000 NG/ML, VIAL STRENGTH 1.5 MG
     Route: 042
     Dates: start: 20071012
  3. FLOLAN [Suspect]
     Active Substance: EPOPROSTENOL SODIUM
     Dosage: 41.9 NG/KG/MIN CO, CONCENTRATION 45,000 NG/ML, VIAL STRENGTH 1.5 MG/ML, PUMP RATE 82 ML/DAY
     Route: 042
     Dates: start: 20071011
  4. WARFARIN [Concomitant]
     Active Substance: WARFARIN
     Dosage: UNK
     Dates: start: 20071127
  5. REVATIO [Concomitant]
     Active Substance: SILDENAFIL CITRATE
     Dosage: UNK
     Dates: start: 20071011

REACTIONS (3)
  - Death [Fatal]
  - Respiratory tract infection [Unknown]
  - Adverse reaction [Unknown]

NARRATIVE: CASE EVENT DATE: 20160504
